FAERS Safety Report 21518747 (Version 1)
Quarter: 2022Q4

REPORT INFORMATION
  Report Type: Spontaneous
  Country: US (occurrence: US)
  Receive Date: 20221028
  Receipt Date: 20221028
  Transmission Date: 20230113
  Serious: Yes (Other)
  Sender: FDA-Public Use
  Company Number: US-ORGANON-O2210USA002054

PATIENT
  Sex: Female

DRUGS (1)
  1. NEXPLANON [Suspect]
     Active Substance: ETONOGESTREL
     Indication: Contraception
     Dosage: 1 IMPLANT, ARM UNSPECIFIED,3 YEARS
     Route: 059
     Dates: start: 20211006

REACTIONS (2)
  - Device dislocation [Not Recovered/Not Resolved]
  - Implant site pain [Unknown]
